FAERS Safety Report 6205968-9 (Version None)
Quarter: 2009Q2

REPORT INFORMATION
  Report Type: 
  Country: None (occurrence: None)
  Receive Date: 20090527
  Receipt Date: 20090527
  Transmission Date: 20091009
  Serious: No
  Sender: FDA-Public Use
  Company Number: None

PATIENT
  Sex: Male
  Weight: 85.7298 kg

DRUGS (1)
  1. LAMOTRIGINE [Suspect]
     Dosage: 150 MG BID PO FILLED 1-27-09
     Route: 048
     Dates: start: 20090127

REACTIONS (3)
  - CONDITION AGGRAVATED [None]
  - IRRITABILITY [None]
  - PRODUCT SUBSTITUTION ISSUE [None]
